FAERS Safety Report 23855634 (Version 1)
Quarter: 2024Q2

REPORT INFORMATION
  Report Type: Spontaneous
  Country: AU (occurrence: AU)
  Receive Date: 20240514
  Receipt Date: 20240514
  Transmission Date: 20240716
  Serious: Yes (Other)
  Sender: FDA-Public Use
  Company Number: AU-GILEAD-2024-0672188

PATIENT
  Sex: Male

DRUGS (3)
  1. TRUVADA [Suspect]
     Active Substance: EMTRICITABINE\TENOFOVIR DISOPROXIL FUMARATE
     Indication: Acquired immunodeficiency syndrome
     Dosage: UNK
     Route: 065
     Dates: start: 2009
  2. ATAZANAVIR [Concomitant]
     Active Substance: ATAZANAVIR
  3. RITONAVIR [Concomitant]
     Active Substance: RITONAVIR

REACTIONS (5)
  - Lipoatrophy [Unknown]
  - Lipodystrophy acquired [Unknown]
  - Body fat disorder [Unknown]
  - Facial wasting [Unknown]
  - Hyperlipidaemia [Unknown]
